FAERS Safety Report 9709029 (Version 1)
Quarter: 2013Q4

REPORT INFORMATION
  Report Type: Spontaneous
  Country: IT (occurrence: None)
  Receive Date: 20131122
  Receipt Date: 20131122
  Transmission Date: 20140711
  Serious: Yes (Hospitalization)
  Sender: FDA-Public Use
  Company Number: KAD201311-001513

PATIENT
  Age: 62 Year
  Sex: Male
  Weight: 80 kg

DRUGS (14)
  1. RIBAVIRIN [Suspect]
     Indication: CHRONIC HEPATITIS C
     Dosage: 800 MG DAILY, ORAL
     Route: 048
     Dates: start: 20130411, end: 20130418
  2. PEGINTERFERONE LAMBDA-1A [Suspect]
     Indication: CHRONIC HEPATITIS C
     Dosage: 180 MCG WEEKLY, SUBCUTANEOUS
     Route: 058
     Dates: start: 20130411, end: 20130418
  3. DACLATASVIR [Suspect]
     Indication: CHRONIC HEPATITIS C
     Dosage: 60 MG DAILY, ORAL
     Route: 048
     Dates: start: 20130411, end: 20130418
  4. SANDIMMUN NEORAL (CYCLOSPORINE) [Concomitant]
  5. EUTIROX (LEVOTHYROXINE) [Concomitant]
  6. DELTACORTENE (PREDNISONE) [Concomitant]
  7. FOSIPRES (FOSINOPRIL SODIUM) [Concomitant]
  8. ROCALTROL [Concomitant]
  9. TAVOR (LORAZEPAM) [Concomitant]
  10. ATENOLOL (ATENOLOL) [Concomitant]
  11. ALLOPURINOL [Concomitant]
  12. VITAMIN A ACETATE (VITAMIN A ACETATE) [Concomitant]
  13. OMEGA 3 ACID ETHYL ESTHERS 90 (OMEGA 3 ACID ETHYL ESTHERS 90)? [Concomitant]
  14. TAMSULOSIN HYDROCHLORIDE (TAMSULOSIN HYDROCHLORIDE) [Concomitant]

REACTIONS (2)
  - Hyperbilirubinaemia [None]
  - Alanine aminotransferase increased [None]
